FAERS Safety Report 8875963 (Version 1)
Quarter: 2012Q4

REPORT INFORMATION
  Report Type: 
  Country: GB (occurrence: GB)
  Receive Date: 20121030
  Receipt Date: 20121030
  Transmission Date: 20130627
  Serious: Yes (Other)
  Sender: FDA-Public Use
  Company Number: PHHY2012GB095315

PATIENT

DRUGS (1)
  1. CALCIUM FOLINATE [Suspect]
     Dosage: 350 mg, UNK
     Route: 042
     Dates: start: 20121010

REACTIONS (1)
  - Extravasation [Not Recovered/Not Resolved]
